FAERS Safety Report 17219984 (Version 1)
Quarter: 2019Q4

REPORT INFORMATION
  Report Type: Spontaneous
  Country: US (occurrence: US)
  Receive Date: 20191231
  Receipt Date: 20191231
  Transmission Date: 20200122
  Serious: No
  Sender: FDA-Public Use
  Company Number: US-SA-2019SA359392

PATIENT
  Age: 41 Year
  Sex: Female

DRUGS (2)
  1. AMLODIPINE;VALSARTAN [Concomitant]
     Active Substance: AMLODIPINE\VALSARTAN
     Dosage: UNK
  2. DUPIXENT [Suspect]
     Active Substance: DUPILUMAB
     Indication: DERMATITIS ATOPIC
     Dosage: 300 MG, QOW
     Route: 058
     Dates: start: 20191130

REACTIONS (1)
  - Sleep disorder [Not Recovered/Not Resolved]
